FAERS Safety Report 9275216 (Version 1)
Quarter: 2013Q2

REPORT INFORMATION
  Report Type: Spontaneous
  Country: US (occurrence: None)
  Receive Date: 20130501
  Receipt Date: 20130501
  Transmission Date: 20140414
  Serious: Yes (Life-Threatening)
  Sender: FDA-Public Use
  Company Number: None

PATIENT
  Age: 71 Year
  Sex: Male

DRUGS (2)
  1. TRAMADOL [Suspect]
     Indication: MYALGIA
     Dosage: 1 -2 TABLETS EVERY 4-6 HRS, MAX 8 TABLETS P.D
     Route: 048
     Dates: start: 20130424, end: 20130427
  2. OMEGA 3 FISH OIL [Concomitant]

REACTIONS (8)
  - Nausea [None]
  - Chest pain [None]
  - Fatigue [None]
  - Gait disturbance [None]
  - Insomnia [None]
  - Condition aggravated [None]
  - Chest discomfort [None]
  - Arrhythmia [None]
